FAERS Safety Report 7437602-4 (Version None)
Quarter: 2011Q2

REPORT INFORMATION
  Report Type: 
  Country: None (occurrence: None)
  Receive Date: 20110426
  Receipt Date: 20110426
  Transmission Date: 20111010
  Serious: Yes (Hospitalization)
  Sender: FDA-Public Use
  Company Number: JP-ABBOTT-11P-087-0713224-00

PATIENT
  Sex: Female
  Weight: 41.8 kg

DRUGS (12)
  1. ERYTHROMYCIN STEARATE [Concomitant]
     Indication: BRONCHIOLITIS
  2. HUMIRA [Suspect]
     Indication: RHEUMATOID ARTHRITIS
     Route: 058
     Dates: start: 20101025, end: 20110311
  3. FOLIC ACID [Concomitant]
     Indication: RHEUMATOID ARTHRITIS
     Dates: start: 20100205
  4. CARBOCISTEINE [Concomitant]
     Indication: BRONCHIOLITIS
  5. LEVOTHYROXINE SODIUM HYDRATE [Concomitant]
     Indication: HYPOTHYROIDISM
  6. LOXOPROFEN SODIUM HYDRATE [Concomitant]
     Indication: RHEUMATOID ARTHRITIS
  7. METHOTREXATE [Suspect]
     Indication: PRODUCT USED FOR UNKNOWN INDICATION
     Dates: start: 20100201
  8. PYRIDOXAL PHOSPHATE HYDRATE [Concomitant]
     Indication: PROPHYLAXIS
     Dates: start: 20100929
  9. ISONIAZID [Concomitant]
     Indication: PROPHYLAXIS
     Dates: start: 20100929
  10. METHOTREXATE [Concomitant]
     Indication: RHEUMATOID ARTHRITIS
     Dosage: 2MG-10MG ONCE A WEEK
     Dates: start: 20100205
  11. DRIED THYROID [Concomitant]
     Indication: PRODUCT USED FOR UNKNOWN INDICATION
  12. METHOTREXATE [Suspect]
     Dates: start: 20101025

REACTIONS (2)
  - ORGANISING PNEUMONIA [None]
  - ARTHRITIS [None]
